FAERS Safety Report 16214896 (Version 1)
Quarter: 2019Q2

REPORT INFORMATION
  Report Type: Spontaneous
  Country: US (occurrence: US)
  Receive Date: 20190418
  Receipt Date: 20190418
  Transmission Date: 20190711
  Serious: Yes (Life-Threatening, Other)
  Sender: FDA-Public Use
  Company Number: None

PATIENT
  Age: 52 Year
  Sex: Female
  Weight: 96.75 kg

DRUGS (1)
  1. FLUTICASONE PROPIONATE. [Suspect]
     Active Substance: FLUTICASONE PROPIONATE
     Indication: SINUSITIS
     Dosage: ?          QUANTITY:1 SPRAY(S);?
     Route: 055
     Dates: start: 20190412, end: 20190414

REACTIONS (7)
  - Wheezing [None]
  - Drug hypersensitivity [None]
  - Swelling face [None]
  - Lip pruritus [None]
  - Tongue pruritus [None]
  - Throat irritation [None]
  - Asthma [None]

NARRATIVE: CASE EVENT DATE: 20190414
